FAERS Safety Report 5200335-9 (Version None)
Quarter: 2006Q4

REPORT INFORMATION
  Report Type: 
  Country: None (occurrence: None)
  Receive Date: 20061016
  Receipt Date: 20060913
  Transmission Date: 20070319
  Serious: No
  Sender: FDA-Public Use
  Company Number: 2006SP003276

PATIENT
  Age: 56 Year

DRUGS (1)
  1. LUNESTA [Suspect]
     Dosage: 2 MG; 3 MG   :    ORAL
     Route: 048

REACTIONS (4)
  - DRUG INEFFECTIVE [None]
  - DYSGEUSIA [None]
  - HEADACHE [None]
  - INSOMNIA [None]
